FAERS Safety Report 25219810 (Version 1)
Quarter: 2025Q2

REPORT INFORMATION
  Report Type: Spontaneous
  Country: IT (occurrence: IT)
  Receive Date: 20250421
  Receipt Date: 20250421
  Transmission Date: 20250716
  Serious: Yes (Death, Other)
  Sender: MARKSANS PHARMA LIMITED
  Company Number: IT-MARKSANS PHARMA LIMITED-MPL202500038

PATIENT

DRUGS (2)
  1. FLUOXETINE [Interacting]
     Active Substance: FLUOXETINE HYDROCHLORIDE
     Indication: Product used for unknown indication
     Route: 045
  2. COCAINE [Interacting]
     Active Substance: COCAINE
     Indication: Product used for unknown indication
     Route: 045

REACTIONS (4)
  - Cardiac failure acute [Fatal]
  - Toxicity to various agents [Fatal]
  - Drug interaction [Fatal]
  - Incorrect route of product administration [Fatal]
